FAERS Safety Report 6288621-5 (Version None)
Quarter: 2009Q3

REPORT INFORMATION
  Report Type: 
  Country: None (occurrence: None)
  Receive Date: 20090729
  Receipt Date: 20090723
  Transmission Date: 20100115
  Serious: Yes (Other)
  Sender: FDA-Public Use
  Company Number: US-BAYER-200912374BCC

PATIENT
  Age: 36 Year
  Sex: Female
  Weight: 79 kg

DRUGS (1)
  1. ALEVE [Suspect]
     Indication: DRUG USE FOR UNKNOWN INDICATION
     Dosage: UNIT DOSE: 220 MG
     Route: 048
     Dates: start: 20090721

REACTIONS (3)
  - DYSPNOEA [None]
  - ERYTHEMA [None]
  - PRURITUS [None]
